FAERS Safety Report 6106944-7 (Version None)
Quarter: 2009Q1

REPORT INFORMATION
  Report Type: 
  Country: None (occurrence: None)
  Receive Date: 20090305
  Receipt Date: 20090305
  Transmission Date: 20090719
  Serious: No
  Sender: FDA-Public Use
  Company Number: None

PATIENT
  Sex: Female
  Weight: 136.0791 kg

DRUGS (1)
  1. DURAGESIC-50 [Suspect]
     Indication: OSTEOARTHRITIS
     Dosage: 50 MCG Q 3 DAYS TOPICAL
     Route: 061
     Dates: start: 20070511, end: 20070521

REACTIONS (2)
  - APPLICATION SITE RASH [None]
  - DRUG INEFFECTIVE [None]
